FAERS Safety Report 10020617 (Version 6)
Quarter: 2014Q4

REPORT INFORMATION
  Report Type: Spontaneous
  Country: CN (occurrence: CN)
  Receive Date: 20140319
  Receipt Date: 20141022
  Transmission Date: 20150528
  Serious: Yes (Other)
  Sender: FDA-Public Use
  Company Number: PHHY2014CN032857

PATIENT
  Age: 35 Year
  Sex: Male

DRUGS (4)
  1. LOTENSIN [Suspect]
     Active Substance: BENAZEPRIL HYDROCHLORIDE
     Indication: HYPERTENSION
     Dosage: 5 MG, IRREGULAR USE
     Route: 048
     Dates: start: 2012
  2. AMLODIPINE [Concomitant]
     Active Substance: AMLODIPINE BESYLATE
     Indication: HYPERTENSION
     Dosage: UNK UKN, UNK
     Route: 048
  3. DIOVAN [Suspect]
     Active Substance: VALSARTAN
     Indication: HYPERTENSION
     Dosage: 80 MG, QD
     Route: 048
     Dates: start: 20120101, end: 20140430
  4. LOTENSIN [Suspect]
     Active Substance: BENAZEPRIL HYDROCHLORIDE
     Dosage: 20 MG  IRREGULAR USE
     Route: 048

REACTIONS (6)
  - Gingival swelling [Unknown]
  - Haemoptysis [Unknown]
  - Blood pressure increased [Unknown]
  - Drug ineffective [Unknown]
  - Cough [Unknown]
  - Periodontal disease [Unknown]

NARRATIVE: CASE EVENT DATE: 20140410
